FAERS Safety Report 19800686 (Version 1)
Quarter: 2021Q3

REPORT INFORMATION
  Report Type: Other
  Country: IT (occurrence: IT)
  Receive Date: 20210908
  Receipt Date: 20210908
  Transmission Date: 20211014
  Serious: Yes (Death, Other)
  Sender: FDA-Public Use
  Company Number: IT-NUVO PHARMACEUTICALS INC-2118092

PATIENT
  Age: 75 Year
  Sex: Female

DRUGS (1)
  1. DIAZEPAM. [Suspect]
     Active Substance: DIAZEPAM
     Indication: ANXIETY
     Route: 065

REACTIONS (2)
  - Drug abuse [Fatal]
  - Respiratory arrest [Fatal]
